FAERS Safety Report 20335718 (Version 1)
Quarter: 2022Q1

REPORT INFORMATION
  Report Type: Spontaneous
  Country: US (occurrence: None)
  Receive Date: 20220113
  Receipt Date: 20220113
  Transmission Date: 20220423
  Serious: Yes (Other)
  Sender: FDA-Public Use
  Company Number: None

PATIENT
  Age: 72 Year
  Sex: Female

DRUGS (4)
  1. BAMLANIVIMAB [Suspect]
     Active Substance: BAMLANIVIMAB
     Indication: SARS-CoV-2 test positive
     Dosage: FREQUENCY : ONCE;?
     Route: 041
     Dates: start: 20220113, end: 20220113
  2. ETESEVIMAB [Suspect]
     Active Substance: ETESEVIMAB
     Indication: SARS-CoV-2 test positive
     Dosage: FREQUENCY : ONCE;?
     Route: 041
     Dates: start: 20220113, end: 20220113
  3. TYLENOL (PRE MED) [Concomitant]
     Dates: start: 20220113, end: 20220113
  4. BENADRYL (PRE MED) [Concomitant]
     Dates: start: 20220113, end: 20220113

REACTIONS (3)
  - Back pain [None]
  - Abdominal pain [None]
  - Throat irritation [None]

NARRATIVE: CASE EVENT DATE: 20220113
